FAERS Safety Report 5490632-4 (Version None)
Quarter: 2007Q4

REPORT INFORMATION
  Report Type: 
  Country: None (occurrence: None)
  Receive Date: 20071019
  Receipt Date: 20071012
  Transmission Date: 20080405
  Serious: Yes (Other)
  Sender: FDA-Public Use
  Company Number: CA-ASTRAZENECA-2007UW23826

PATIENT
  Age: 75 Year
  Sex: Male

DRUGS (13)
  1. CRESTOR [Suspect]
     Route: 048
  2. ACCUPRIL [Concomitant]
  3. APO-BISOPROLOL [Concomitant]
  4. ASAPHEN [Concomitant]
  5. FUROSEMIDE [Concomitant]
  6. GLYBURIDE [Concomitant]
  7. IMDUR [Concomitant]
  8. METFORMIN HCL [Concomitant]
  9. NASONEX [Concomitant]
  10. NITROLINGUAL [Concomitant]
  11. RIVA K SR [Concomitant]
  12. TRUSOPT [Concomitant]
  13. XALATAN [Concomitant]

REACTIONS (3)
  - DYSKINESIA [None]
  - HYPOKINESIA [None]
  - MYALGIA [None]
